FAERS Safety Report 9806902 (Version 1)
Quarter: 2014Q1

REPORT INFORMATION
  Report Type: Spontaneous
  Country: CA (occurrence: CA)
  Receive Date: 20140109
  Receipt Date: 20140109
  Transmission Date: 20141002
  Serious: Yes (Hospitalization)
  Sender: FDA-Public Use
  Company Number: CA-009507513-1401CAN002499

PATIENT
  Age: 55 Year
  Sex: Female

DRUGS (1)
  1. SINGULAIR [Suspect]
     Dosage: DAILY
     Route: 048

REACTIONS (1)
  - Knee arthroplasty [Unknown]
